FAERS Safety Report 7113168-3 (Version None)
Quarter: 2010Q4

REPORT INFORMATION
  Report Type: 
  Country: None (occurrence: None)
  Receive Date: 20101119
  Receipt Date: 20101110
  Transmission Date: 20110411
  Serious: Yes (Other)
  Sender: FDA-Public Use
  Company Number: US-JNJFOC-20101103948

PATIENT
  Age: 33 Year
  Sex: Male

DRUGS (4)
  1. REMICADE [Suspect]
     Indication: COLITIS ULCERATIVE
     Route: 042
  2. TACROLIMUS [Concomitant]
     Route: 061
  3. AZATHIOPRINE [Concomitant]
     Route: 048
  4. PREDNISONE [Concomitant]
     Route: 048

REACTIONS (3)
  - IMMUNOSUPPRESSANT DRUG LEVEL DECREASED [None]
  - MICROANGIOPATHIC HAEMOLYTIC ANAEMIA [None]
  - PLATELET COUNT DECREASED [None]
